FAERS Safety Report 4584832-5 (Version None)
Quarter: 2005Q1

REPORT INFORMATION
  Report Type: 
  Country: None (occurrence: None)
  Receive Date: 20050214
  Receipt Date: 20050203
  Transmission Date: 20050727
  Serious: Yes (Other)
  Sender: FDA-Public Use
  Company Number: 2004-10-1094

PATIENT
  Age: 44 Year
  Sex: Male

DRUGS (2)
  1. INFERGEN [Suspect]
     Indication: HEPATITIS C
     Dosage: 15 MCG QD SUBCUTANEOUS; 5+ WEEK(S)
     Route: 058
  2. REBETOL [Suspect]
     Indication: HEPATITIS C
     Dosage: WT-BASED QD ORAL; 5+ WEEK(S)
     Route: 048

REACTIONS (10)
  - BLINDNESS UNILATERAL [None]
  - EYE DISORDER [None]
  - OPTIC ISCHAEMIC NEUROPATHY [None]
  - OPTIC NERVE DISORDER [None]
  - OPTIC NEURITIS [None]
  - RETINAL EXUDATES [None]
  - RETINAL ISCHAEMIA [None]
  - SCAR [None]
  - VISUAL DISTURBANCE [None]
  - VISUAL FIELD DEFECT [None]
